FAERS Safety Report 10305815 (Version 1)
Quarter: 2014Q3

REPORT INFORMATION
  Report Type: Spontaneous
  Country: US (occurrence: None)
  Receive Date: 20140710
  Receipt Date: 20140710
  Transmission Date: 20150326
  Serious: Yes (Other)
  Sender: FDA-Public Use
  Company Number: ADR-2014-00661

PATIENT
  Age: 70 Year
  Sex: Male

DRUGS (2)
  1. COMPOUNDED BACLOFEN [Suspect]
     Active Substance: BACLOFEN
     Indication: PAIN
  2. HYDROMORPHONE [Suspect]
     Active Substance: HYDROMORPHONE

REACTIONS (8)
  - Device issue [None]
  - Malaise [None]
  - Lung disorder [None]
  - Therapeutic response decreased [None]
  - Device battery issue [None]
  - Pain [None]
  - Feeling abnormal [None]
  - Tremor [None]

NARRATIVE: CASE EVENT DATE: 20140413
